FAERS Safety Report 6109177-3 (Version None)
Quarter: 2009Q1

REPORT INFORMATION
  Report Type: 
  Country: None (occurrence: None)
  Receive Date: 20090310
  Receipt Date: 20090227
  Transmission Date: 20090719
  Serious: Yes (Hospitalization, Other)
  Sender: FDA-Public Use
  Company Number: JP-NOVOPROD-284445

PATIENT
  Sex: Female
  Weight: 50 kg

DRUGS (8)
  1. NOVORAPID CHU PENFILL [Suspect]
     Indication: TYPE 1 DIABETES MELLITUS
     Dosage: 36 IU, QD (12+12+12)
     Route: 058
     Dates: start: 20070801
  2. NOVORAPID CHU PENFILL [Suspect]
     Dosage: 30 IU (10-10-10), QD
     Route: 058
  3. NOVORAPID CHU PENFILL [Suspect]
     Dosage: 16 IU, QD (6-4-6)
     Route: 058
  4. NOVOLIN N [Suspect]
     Indication: TYPE 1 DIABETES MELLITUS
     Dosage: 14 IU (0-0-0-14)
     Route: 058
     Dates: start: 20070801, end: 20090119
  5. NOVOLIN N [Suspect]
     Dosage: 10 IU
     Route: 058
  6. NOVOLIN N [Suspect]
     Dosage: 14 IU (0-0-0-14)
  7. INSULATARD NPH HUMAN [Concomitant]
     Dosage: 10 IU, QD
     Route: 058
     Dates: end: 20090121
  8. LEVEMIR [Concomitant]
     Indication: TYPE 1 DIABETES MELLITUS
     Dosage: 8 IU, QD
     Route: 058
     Dates: start: 20090120

REACTIONS (6)
  - ABDOMINAL DISCOMFORT [None]
  - ANOREXIA [None]
  - DIABETIC KETOACIDOSIS [None]
  - DUODENITIS [None]
  - HYPOGLYCAEMIA [None]
  - REFLUX OESOPHAGITIS [None]
